FAERS Safety Report 21850452 (Version 3)
Quarter: 2023Q1

REPORT INFORMATION
  Report Type: Report from Study
  Country: US (occurrence: US)
  Receive Date: 20230111
  Receipt Date: 20230315
  Transmission Date: 20230418
  Serious: Yes (Hospitalization)
  Sender: FDA-Public Use
  Company Number: US-ALLERGAN-2300597US

PATIENT
  Sex: Female

DRUGS (2)
  1. ATOGEPANT [Suspect]
     Active Substance: ATOGEPANT
     Indication: Migraine
     Dosage: UNK
     Dates: start: 20230115
  2. ATOGEPANT [Suspect]
     Active Substance: ATOGEPANT
     Dosage: 10 MG
     Dates: start: 20221208, end: 20221222

REACTIONS (8)
  - Hypertension [Unknown]
  - Cough [Unknown]
  - Loss of personal independence in daily activities [Unknown]
  - Migraine [Recovering/Resolving]
  - Asthenia [Unknown]
  - Therapy interrupted [Unknown]
  - Headache [Unknown]
  - Therapeutic product effect incomplete [Unknown]

NARRATIVE: CASE EVENT DATE: 20230101
